FAERS Safety Report 24468362 (Version 2)
Quarter: 2024Q4

REPORT INFORMATION
  Report Type: Spontaneous
  Country: JP (occurrence: JP)
  Receive Date: 20241018
  Receipt Date: 20241202
  Transmission Date: 20250115
  Serious: Yes (Death, Other)
  Sender: OTSUKA
  Company Number: JP-OTSUKA-2024_028309

PATIENT
  Age: 8 Decade
  Sex: Male

DRUGS (12)
  1. SAMSCA [Suspect]
     Active Substance: TOLVAPTAN
     Indication: Oedema due to cardiac disease
     Dosage: UNK
     Route: 048
     Dates: start: 20210302
  2. SAMSCA [Suspect]
     Active Substance: TOLVAPTAN
     Dosage: 3.75 MG/DAY
     Route: 048
     Dates: start: 20191114, end: 20200624
  3. SAMSCA [Suspect]
     Active Substance: TOLVAPTAN
     Dosage: 7.5MG/DAY
     Route: 048
     Dates: start: 20200625, end: 20200916
  4. SAMSCA [Suspect]
     Active Substance: TOLVAPTAN
     Dosage: 11.25MG/DAY
     Route: 048
     Dates: start: 20200917, end: 20201021
  5. SAMSCA [Suspect]
     Active Substance: TOLVAPTAN
     Dosage: 15 MG/DAY
     Route: 048
     Dates: start: 20201022, end: 20210111
  6. FUROSEMIDE [Suspect]
     Active Substance: FUROSEMIDE
     Indication: Product used for unknown indication
     Dosage: UNK
     Route: 065
     Dates: start: 20210302
  7. FUROSEMIDE [Suspect]
     Active Substance: FUROSEMIDE
     Dosage: UNK
     Route: 065
     Dates: end: 20210111
  8. AMIODARONE HYDROCHLORIDE [Suspect]
     Active Substance: AMIODARONE HYDROCHLORIDE
     Indication: Product used for unknown indication
     Dosage: UNK
     Route: 065
     Dates: end: 20210106
  9. APIXABAN [Concomitant]
     Active Substance: APIXABAN
     Indication: Product used for unknown indication
     Dosage: UNK
     Route: 065
  10. BISOPROLOL FUMARATE [Concomitant]
     Active Substance: BISOPROLOL FUMARATE
     Indication: Product used for unknown indication
     Dosage: UNK
     Route: 065
  11. FEBUXOSTAT [Concomitant]
     Active Substance: FEBUXOSTAT
     Indication: Product used for unknown indication
     Dosage: UNK
     Route: 065
  12. RABEPRAZOLE SODIUM [Concomitant]
     Active Substance: RABEPRAZOLE SODIUM
     Indication: Product used for unknown indication
     Dosage: UNK
     Route: 065

REACTIONS (3)
  - Death [Fatal]
  - Pulmonary toxicity [Unknown]
  - Prescribed underdose [Unknown]

NARRATIVE: CASE EVENT DATE: 20191114
